FAERS Safety Report 8953049 (Version 1)
Quarter: 2012Q4

REPORT INFORMATION
  Report Type: 
  Country: US (occurrence: US)
  Receive Date: 20121205
  Receipt Date: 20121205
  Transmission Date: 20130627
  Serious: Yes (Other)
  Sender: FDA-Public Use
  Company Number: CHPA2012US024339

PATIENT
  Age: 43 Year
  Sex: Female

DRUGS (2)
  1. THERAFLU DAYTIME [Suspect]
     Indication: NASOPHARYNGITIS
     Dosage: 6 TSP, 3 or 4 TIMES A YEAR
     Route: 048
  2. ANTIHISTAMINES [Concomitant]
     Dosage: Unk, Unk

REACTIONS (3)
  - Malaise [Unknown]
  - Insomnia [Unknown]
  - Expired drug administered [Unknown]
